FAERS Safety Report 4597065-3 (Version None)
Quarter: 2005Q1

REPORT INFORMATION
  Report Type: 
  Country: None (occurrence: None)
  Receive Date: 20050301
  Receipt Date: 20050209
  Transmission Date: 20050727
  Serious: Yes (Other)
  Sender: FDA-Public Use
  Company Number: MET-US-05-00017

PATIENT
  Age: 66 Year
  Sex: Male
  Weight: 78.9259 kg

DRUGS (6)
  1. FORTAMET [Suspect]
     Indication: DIABETES MELLITUS NON-INSULIN-DEPENDENT
     Dosage: 500 MG PO BID
     Route: 048
     Dates: start: 20041126, end: 20050127
  2. AVANDAMET (TABLETS) (ROSIGLITAZONE/METFORMIN) [Suspect]
     Indication: DIABETES MELLITUS NON-INSULIN-DEPENDENT
     Dosage: 2 MG/500 MG PO BID
     Route: 048
     Dates: start: 20050128, end: 20050203
  3. TOPROL-XL [Concomitant]
  4. VITAMIN C [Concomitant]
  5. OTHER UNSPECIFIED VITAMINS [Concomitant]
  6. TUMS (CALCIUM) [Concomitant]

REACTIONS (12)
  - BILE DUCT OBSTRUCTION [None]
  - BILIARY DILATATION [None]
  - CHOLELITHIASIS [None]
  - CONSTIPATION [None]
  - DIABETES MELLITUS INADEQUATE CONTROL [None]
  - DILATATION INTRAHEPATIC DUCT ACQUIRED [None]
  - DYSPEPSIA [None]
  - FLATULENCE [None]
  - GLYCOSYLATED HAEMOGLOBIN INCREASED [None]
  - NAUSEA [None]
  - PANCREATIC DUCT OBSTRUCTION [None]
  - STOMACH DISCOMFORT [None]
